FAERS Safety Report 7129642-X (Version None)
Quarter: 2010Q4

REPORT INFORMATION
  Report Type: 
  Country: None (occurrence: None)
  Receive Date: 20101130
  Receipt Date: 20101102
  Transmission Date: 20110411
  Serious: Yes (Other)
  Sender: FDA-Public Use
  Company Number: PHHY2010GR74127

PATIENT

DRUGS (1)
  1. AFINITOR [Suspect]
     Dosage: UNK

REACTIONS (1)
  - DRUG TOXICITY [None]
